FAERS Safety Report 10025851 (Version 1)
Quarter: 2014Q1

REPORT INFORMATION
  Report Type: Spontaneous
  Country: GB (occurrence: None)
  Receive Date: 20140314
  Receipt Date: 20140314
  Transmission Date: 20141002
  Serious: Yes (Hospitalization, Disabling, Other)
  Sender: FDA-Public Use
  Company Number: AUR-APL-2014-02620

PATIENT
  Age: 54 Year
  Sex: Female
  Weight: 81.64 kg

DRUGS (2)
  1. SIMVASTATIN [Suspect]
     Indication: HYPERCHOLESTEROLAEMIA
     Route: 048
     Dates: start: 2003, end: 20131204
  2. STARFLOWER OIL (BORAGO OFFICINALIS OIL) [Concomitant]

REACTIONS (8)
  - Back pain [None]
  - Hypoaesthesia [None]
  - Pain in extremity [None]
  - Pain in extremity [None]
  - Fatigue [None]
  - Asthenia [None]
  - Activities of daily living impaired [None]
  - Inflammation [None]
